FAERS Safety Report 9117888 (Version 1)
Quarter: 2013Q1

REPORT INFORMATION
  Report Type: Spontaneous
  Country: US (occurrence: US)
  Receive Date: 20130225
  Receipt Date: 20130225
  Transmission Date: 20140127
  Serious: Yes (Other)
  Sender: FDA-Public Use
  Company Number: US-PFIZER INC-2013065055

PATIENT
  Sex: Male

DRUGS (1)
  1. METHIMAZOLE [Suspect]
     Dosage: 15 MG, 1X/DAY
     Route: 048
     Dates: start: 201209, end: 201212

REACTIONS (2)
  - Wrong drug administered [Unknown]
  - Hypothyroidism [Unknown]
